FAERS Safety Report 7420856-8 (Version None)
Quarter: 2011Q2

REPORT INFORMATION
  Report Type: 
  Country: None (occurrence: None)
  Receive Date: 20110407
  Receipt Date: 20110329
  Transmission Date: 20111010
  Serious: Yes (Other)
  Sender: FDA-Public Use
  Company Number: 877057

PATIENT
  Age: 49 Year
  Sex: Male

DRUGS (4)
  1. PIPERACILLIN AND TAZOBACTAM [Suspect]
     Indication: PNEUMONIA STAPHYLOCOCCAL
  2. TRIMETHOPRIM + SULFAMETHOXAZOLE [Concomitant]
  3. FUROSEMIDE [Concomitant]
  4. VANCOMYCIN HYDROCHLORIDE [Suspect]
     Indication: PNEUMONIA STAPHYLOCOCCAL

REACTIONS (1)
  - LINEAR IGA DISEASE [None]
